FAERS Safety Report 9099753 (Version 1)
Quarter: 2013Q1

REPORT INFORMATION
  Report Type: Spontaneous
  Country: JP (occurrence: JP)
  Receive Date: 20130214
  Receipt Date: 20130214
  Transmission Date: 20140127
  Serious: Yes (Hospitalization)
  Sender: FDA-Public Use
  Company Number: JP-ELI_LILLY_AND_COMPANY-JP201302002548

PATIENT
  Age: 73 Year
  Sex: Male
  Weight: 48 kg

DRUGS (2)
  1. GEMCITABINE HYDROCHLORIDE [Suspect]
     Indication: BILE DUCT CANCER STAGE IV
     Dosage: 1400 MG, OTHER
     Route: 042
     Dates: start: 20080205, end: 2011
  2. GEMCITABINE HYDROCHLORIDE [Suspect]
     Dosage: 1000 MG, OTHER
     Route: 042
     Dates: start: 20080205, end: 2011

REACTIONS (6)
  - Disseminated intravascular coagulation [Recovering/Resolving]
  - Malignant ascites [Recovered/Resolved]
  - Platelet count decreased [Recovering/Resolving]
  - White blood cell count decreased [Recovering/Resolving]
  - Haematotoxicity [None]
  - Oedema peripheral [None]
